FAERS Safety Report 9224838 (Version 3)
Quarter: 2015Q2

REPORT INFORMATION
  Report Type: Report from Study
  Country: US (occurrence: US)
  Receive Date: 20130411
  Receipt Date: 20150615
  Transmission Date: 20150821
  Serious: Yes (Hospitalization, Other)
  Sender: FDA-Public Use
  Company Number: US-SANOFI-AVENTIS-2013SA036748

PATIENT
  Age: 51 Year
  Sex: Female

DRUGS (2)
  1. AUBAGIO [Suspect]
     Active Substance: TERIFLUNOMIDE
     Indication: MULTIPLE SCLEROSIS
     Route: 048
     Dates: start: 20130223, end: 20130528
  2. AUBAGIO [Suspect]
     Active Substance: TERIFLUNOMIDE
     Indication: MULTIPLE SCLEROSIS
     Route: 048
     Dates: start: 20150406, end: 20150530

REACTIONS (14)
  - Cardiac valve disease [Unknown]
  - Headache [Unknown]
  - Unevaluable event [Unknown]
  - Alopecia [Unknown]
  - Neutrophil count decreased [Unknown]
  - Mass [Unknown]
  - Sinusitis [Unknown]
  - Blood cortisol decreased [Unknown]
  - Unevaluable event [Unknown]
  - White blood cell count decreased [Unknown]
  - Oophorectomy [Unknown]
  - Nausea [Recovered/Resolved]
  - Hypertension [Unknown]
  - Cyst [Unknown]

NARRATIVE: CASE EVENT DATE: 20130318
